FAERS Safety Report 4463049-9 (Version None)
Quarter: 2004Q3

REPORT INFORMATION
  Report Type: 
  Country: None (occurrence: None)
  Receive Date: 20040928
  Receipt Date: 20040916
  Transmission Date: 20050211
  Serious: Yes (Death)
  Sender: FDA-Public Use
  Company Number: HQWYE098916SEP04

PATIENT
  Age: 16 Year
  Sex: Male

DRUGS (2)
  1. EFFEXOR [Suspect]
     Dosage: UNKNOWN;  ^DOSE DOUBLED^
     Dates: start: 19960101, end: 19960101
  2. EFFEXOR [Suspect]
     Dosage: UNKNOWN;  ^DOSE DOUBLED^
     Dates: end: 19960101

REACTIONS (2)
  - ABNORMAL BEHAVIOUR [None]
  - COMPLETED SUICIDE [None]
